FAERS Safety Report 12689635 (Version 1)
Quarter: 2016Q3

REPORT INFORMATION
  Report Type: Spontaneous
  Country: US (occurrence: US)
  Receive Date: 20160826
  Receipt Date: 20160826
  Transmission Date: 20161109
  Serious: Yes (Hospitalization, Other)
  Sender: FDA-Public Use
  Company Number: US-BAYER-2016-164074

PATIENT
  Age: 77 Year
  Sex: Male
  Weight: 70 kg

DRUGS (10)
  1. LAPPACONITINE HYDROBROMIDE [Concomitant]
     Indication: ARRHYTHMIA
     Dosage: 12.5 MG, BID
     Route: 048
     Dates: start: 20151127
  2. CLOPIDOGREL [Interacting]
     Active Substance: CLOPIDOGREL BISULFATE
     Indication: THROMBOSIS PROPHYLAXIS
     Dosage: UNK
     Dates: start: 20160506
  3. BISOPROLOL [Concomitant]
     Active Substance: BISOPROLOL
     Indication: HYPERTENSION
     Dosage: 5 MG, QD
     Route: 048
     Dates: start: 20150129
  4. AMLODIPIN [Concomitant]
     Active Substance: AMLODIPINE BESYLATE
     Indication: HYPERTENSION
     Dosage: 5 MG, QD
     Route: 048
     Dates: start: 20150920
  5. BAYER GENUINE ASPIRIN [Suspect]
     Active Substance: ASPIRIN
     Indication: ISCHAEMIC HEART DISEASE PROPHYLAXIS
     Dosage: 100 MG, QD
     Route: 048
     Dates: start: 20140504, end: 20160420
  6. CLOPIDOGREL [Interacting]
     Active Substance: CLOPIDOGREL BISULFATE
     Indication: THROMBOSIS PROPHYLAXIS
     Dosage: 75 MG, QD
     Route: 048
     Dates: start: 20140504, end: 20160420
  7. OMEPRAZOLE. [Concomitant]
     Active Substance: OMEPRAZOLE
     Indication: GASTRIC ULCER
     Dosage: 20 MG, QD
     Route: 048
     Dates: start: 20160227
  8. ATORVASTATIN [Concomitant]
     Active Substance: ATORVASTATIN
     Indication: ARTERIOSCLEROSIS
     Dosage: 40 MG, QD
     Route: 048
     Dates: start: 20160520
  9. DOXAZOSIN [Concomitant]
     Active Substance: DOXAZOSIN\DOXAZOSIN MESYLATE
     Indication: BENIGN PROSTATIC HYPERPLASIA
     Dosage: 4 MG, QD
     Route: 048
     Dates: start: 20140814
  10. FINASTERIDE. [Concomitant]
     Active Substance: FINASTERIDE
     Indication: BENIGN PROSTATIC HYPERPLASIA
     Dosage: 5 MG, QD
     Route: 048
     Dates: start: 20160217

REACTIONS (4)
  - Drug administration error [None]
  - Gastrointestinal haemorrhage [Recovered/Resolved]
  - Iron deficiency anaemia [Recovered/Resolved]
  - Labelled drug-drug interaction medication error [None]

NARRATIVE: CASE EVENT DATE: 20160419
